FAERS Safety Report 8626033-7 (Version None)
Quarter: 2012Q3

REPORT INFORMATION
  Report Type: 
  Country: None (occurrence: None)
  Receive Date: 20120827
  Receipt Date: 20120820
  Transmission Date: 20120928
  Serious: Yes (Other)
  Sender: FDA-Public Use
  Company Number: IT-TEVA-354964ISR

PATIENT
  Age: 48 Year
  Sex: Female

DRUGS (7)
  1. CLOZAPINE [Suspect]
     Dosage: 100 MILLIGRAM DAILY;
     Route: 065
  2. HALOPERIDOL [Suspect]
     Dosage: 2 MILLIGRAM DAILY;
     Route: 030
     Dates: start: 20081201
  3. OLANZAPINE [Suspect]
     Dosage: UP TO 10 MG/DAY
     Route: 065
     Dates: start: 20080101
  4. CLOZAPINE [Suspect]
     Dosage: OVERDOSE
     Route: 065
     Dates: start: 20081101
  5. CHLORPROMAZINE HCL [Suspect]
     Dosage: 50 MILLIGRAM DAILY;
     Route: 030
     Dates: start: 20081201
  6. CLOZAPINE [Suspect]
     Indication: INTENTIONAL OVERDOSE
     Dosage: 25 MILLIGRAM DAILY;
     Route: 065
  7. DOXAZOSIN MESYLATE [Concomitant]
     Indication: HYPERTENSION
     Route: 065

REACTIONS (2)
  - NEUROLEPTIC MALIGNANT SYNDROME [None]
  - CATATONIA [None]
